FAERS Safety Report 9326908 (Version 2)
Quarter: 2013Q2

REPORT INFORMATION
  Report Type: Spontaneous
  Country: JP (occurrence: JP)
  Receive Date: 20130604
  Receipt Date: 20130605
  Transmission Date: 20140414
  Serious: Yes (Other)
  Sender: FDA-Public Use
  Company Number: PHHY2013JP054509

PATIENT
  Age: 66 Year
  Sex: Male

DRUGS (3)
  1. LEVOFLOXACIN [Suspect]
     Indication: ENTEROCOLITIS
     Dosage: 500 MG
     Route: 048
  2. LEVOFLOXACIN [Suspect]
     Dosage: 250 MG EVERY 48 HOURS
     Route: 048
  3. PREDNISOLONE [Suspect]
     Dosage: 1 MG DAILY

REACTIONS (4)
  - Tendonitis [Recovered/Resolved]
  - Tendon injury [Recovered/Resolved]
  - Tendon pain [Recovered/Resolved]
  - Gait disturbance [Recovered/Resolved]
